FAERS Safety Report 8910700 (Version 1)
Quarter: 2012Q4

REPORT INFORMATION
  Report Type: Spontaneous
  Country: IT (occurrence: None)
  Receive Date: 20121107
  Receipt Date: 20121107
  Transmission Date: 20130627
  Serious: Yes (Life-Threatening, Other)
  Sender: FDA-Public Use
  Company Number: FK201203280

PATIENT
  Age: 54 Year
  Sex: Female

DRUGS (5)
  1. PACLITAXEL [Suspect]
     Indication: BREAST CANCER
     Route: 042
     Dates: start: 20121004, end: 20121004
  2. AVASTIN [Suspect]
     Indication: BREAST CANCER
     Dosage: Intravenous (not otherwise specified)
     Route: 042
     Dates: start: 20121004, end: 20121004
  3. DEXAMETHASONE (DEXAMETHASONE) [Concomitant]
  4. RANITIDINE HYDROCHLORIDE (RANITIDINE HYDROCHLORIDE) [Concomitant]
  5. ONDANSETRON (ONDANSETRON) [Suspect]

REACTIONS (6)
  - Diarrhoea [None]
  - Flushing [None]
  - Fluid retention [None]
  - Hypertension [None]
  - Neutropenia [None]
  - Sciatica [None]
